FAERS Safety Report 7385847-4 (Version None)
Quarter: 2011Q1

REPORT INFORMATION
  Report Type: 
  Country: None (occurrence: None)
  Receive Date: 20110331
  Receipt Date: 20110328
  Transmission Date: 20110831
  Serious: No
  Sender: FDA-Public Use
  Company Number: US-PFIZER INC-2011041301

PATIENT
  Sex: Male

DRUGS (4)
  1. LISINOPRIL [Concomitant]
  2. WELLBUTRIN XL [Concomitant]
     Dosage: 450/DAY
  3. SIMVASTATIN [Concomitant]
  4. GEODON [Suspect]
     Dosage: 40 MG, 3X/DAY
     Route: 048

REACTIONS (3)
  - PALPITATIONS [None]
  - ERECTILE DYSFUNCTION [None]
  - NERVOUSNESS [None]
